FAERS Safety Report 10037902 (Version 1)
Quarter: 2014Q1

REPORT INFORMATION
  Report Type: Spontaneous
  Country: US (occurrence: US)
  Receive Date: 20140326
  Receipt Date: 20140326
  Transmission Date: 20141002
  Serious: No
  Sender: FDA-Public Use
  Company Number: US-PFIZER INC-2014085247

PATIENT
  Age: 47 Year
  Sex: Male
  Weight: 167.8 kg

DRUGS (2)
  1. CELEBREX [Suspect]
     Indication: ARTHRITIS
     Dosage: 200 MG, 1X/DAY
     Route: 048
     Dates: start: 20140318
  2. GABAPENTIN [Concomitant]
     Dosage: 600 MG, UNK

REACTIONS (1)
  - Drug ineffective [Unknown]
